FAERS Safety Report 9256960 (Version 1)
Quarter: 2013Q2

REPORT INFORMATION
  Report Type: Spontaneous
  Country: US (occurrence: None)
  Receive Date: 20130424
  Receipt Date: 20130424
  Transmission Date: 20140414
  Serious: Yes (Death)
  Sender: FDA-Public Use
  Company Number: None

PATIENT
  Age: 36 Year
  Sex: Female

DRUGS (1)
  1. METHADONE [Suspect]

REACTIONS (9)
  - Accidental overdose [None]
  - Road traffic accident [None]
  - Drug interaction [None]
  - Toxicity to various agents [None]
  - Drug screen [None]
  - Respiratory tract congestion [None]
  - Scar [None]
  - Mass [None]
  - Nail disorder [None]
